FAERS Safety Report 25652587 (Version 1)
Quarter: 2025Q3

REPORT INFORMATION
  Report Type: Spontaneous
  Country: JP (occurrence: JP)
  Receive Date: 20250807
  Receipt Date: 20250807
  Transmission Date: 20251021
  Serious: Yes (Hospitalization)
  Sender: CHIESI
  Company Number: JP-CHIESI-2025CHF05409

PATIENT
  Age: 60 Year
  Sex: Male

DRUGS (1)
  1. JUXTAPID [Suspect]
     Active Substance: LOMITAPIDE MESYLATE
     Indication: Type IIa hyperlipidaemia
     Dosage: 5 MILLIGRAM, QD
     Route: 048
     Dates: start: 20220713

REACTIONS (6)
  - Supravalvular aortic stenosis [Recovering/Resolving]
  - Disease progression [Recovering/Resolving]
  - Type IIa hyperlipidaemia [Recovering/Resolving]
  - Disease progression [Recovering/Resolving]
  - Supravalvular aortic stenosis [Recovering/Resolving]
  - Disease progression [Recovering/Resolving]

NARRATIVE: CASE EVENT DATE: 20250301
